FAERS Safety Report 10927852 (Version 2)
Quarter: 2015Q1

REPORT INFORMATION
  Report Type: Spontaneous
  Country: CY (occurrence: CY)
  Receive Date: 20150319
  Receipt Date: 20150331
  Transmission Date: 20150721
  Serious: Yes (Hospitalization, Disabling)
  Sender: FDA-Public Use
  Company Number: PHHY2015CY027989

PATIENT
  Age: 63 Year
  Sex: Female

DRUGS (5)
  1. TRILEPTAL [Concomitant]
     Active Substance: OXCARBAZEPINE
     Indication: SEIZURE
     Dosage: 300 MG, BID
     Route: 048
  2. GILENYA [Suspect]
     Active Substance: FINGOLIMOD HYDROCHLORIDE
     Dosage: 0.5 MG, QD
     Route: 048
  3. AMITRIPTYLINE [Concomitant]
     Active Substance: AMITRIPTYLINE
     Indication: DEPRESSION
     Dosage: 50 MG, QD
     Route: 048
  4. GILENYA [Suspect]
     Active Substance: FINGOLIMOD HYDROCHLORIDE
     Indication: RELAPSING-REMITTING MULTIPLE SCLEROSIS
     Dosage: 0.5 MG, QD
     Route: 048
     Dates: start: 20131022, end: 20150307
  5. STATIN EZ [Concomitant]
     Indication: HYPERLIPIDAEMIA
     Route: 048

REACTIONS (9)
  - Asthenia [Unknown]
  - Multiple sclerosis relapse [Recovered/Resolved]
  - Eye movement disorder [Recovered/Resolved]
  - Demyelination [Unknown]
  - Cognitive disorder [Unknown]
  - Sensory loss [Unknown]
  - Body temperature increased [Recovering/Resolving]
  - Hemiparesis [Recovering/Resolving]
  - Dysarthria [Unknown]

NARRATIVE: CASE EVENT DATE: 20150307
